APPROVED DRUG PRODUCT: MEFOXIN IN DEXTROSE 5% IN PLASTIC CONTAINER
Active Ingredient: CEFOXITIN SODIUM
Strength: EQ 20MG BASE/ML **Federal Register determination that product was not discontinued or withdrawn for safety or effectiveness reasons**
Dosage Form/Route: INJECTABLE;INJECTION
Application: N050581 | Product #003
Applicant: MERCK AND CO INC
Approved: Sep 20, 1984 | RLD: Yes | RS: No | Type: DISCN